FAERS Safety Report 6747584-6 (Version None)
Quarter: 2010Q2

REPORT INFORMATION
  Report Type: 
  Country: None (occurrence: None)
  Receive Date: 20100528
  Receipt Date: 20100525
  Transmission Date: 20101027
  Serious: Yes (Other)
  Sender: FDA-Public Use
  Company Number: US-BRISTOL-MYERS SQUIBB COMPANY-15122369

PATIENT
  Sex: Male

DRUGS (3)
  1. GLUCOPHAGE [Suspect]
  2. GLUCOTROL [Suspect]
  3. LANTUS [Concomitant]

REACTIONS (1)
  - GLAUCOMA [None]
